FAERS Safety Report 21516859 (Version 3)
Quarter: 2022Q4

REPORT INFORMATION
  Report Type: Report from Study
  Country: US (occurrence: US)
  Receive Date: 20221028
  Receipt Date: 20221117
  Transmission Date: 20230112
  Serious: Yes (Hospitalization, Other)
  Sender: FDA-Public Use
  Company Number: US-ABBVIE-4176969

PATIENT
  Sex: Female

DRUGS (1)
  1. HUMIRA [Suspect]
     Active Substance: ADALIMUMAB
     Indication: Psoriasis
     Dosage: CF/FORM STRENGTH: 40MG
     Route: 058

REACTIONS (4)
  - Joint effusion [Unknown]
  - Knee operation [Unknown]
  - Arthritis infective [Unknown]
  - Arthritis [Unknown]

NARRATIVE: CASE EVENT DATE: 20020101
